FAERS Safety Report 4962147-0 (Version None)
Quarter: 2006Q2

REPORT INFORMATION
  Report Type: 
  Country: None (occurrence: None)
  Receive Date: 20060404
  Receipt Date: 20051129
  Transmission Date: 20061013
  Serious: Yes (Hospitalization, Disabling)
  Sender: FDA-Public Use
  Company Number: US-MERCK-0511USA04491

PATIENT
  Age: 47 Year
  Sex: Male
  Weight: 86 kg

DRUGS (29)
  1. VIOXX [Suspect]
     Indication: ARTHRITIS
     Route: 048
     Dates: start: 20010101, end: 20040901
  2. VIOXX [Suspect]
     Indication: ANALGESIC EFFECT
     Route: 048
     Dates: start: 20010101, end: 20040901
  3. GLIPIZIDE [Concomitant]
     Indication: DIABETES MELLITUS
     Route: 065
  4. METFORMIN [Concomitant]
     Indication: DIABETES MELLITUS
     Route: 065
  5. AUGMENTIN '125' [Concomitant]
     Route: 065
  6. DOCUSATE SODIUM [Concomitant]
     Route: 065
  7. ZOVIRAX [Concomitant]
     Indication: DIABETES MELLITUS
     Route: 065
  8. PERIDEX [Concomitant]
     Route: 065
  9. BENZONATATE [Concomitant]
     Route: 065
  10. HYDROXYZINE HYDROCHLORIDE [Concomitant]
     Route: 065
  11. GEMFIBROZIL [Concomitant]
     Route: 065
  12. CLOTRIMAZOLE [Concomitant]
     Route: 065
  13. AMOXICILLIN [Concomitant]
     Route: 065
  14. CLARITIN [Concomitant]
     Route: 065
  15. NULYTELY [Concomitant]
     Route: 065
  16. VASOTEC RPD [Concomitant]
     Indication: HYPERTENSION
     Route: 048
  17. GLUCOTROL [Concomitant]
     Indication: DIABETES MELLITUS
     Route: 065
  18. ERYTHROMYCIN [Concomitant]
     Route: 065
  19. PREVACID [Concomitant]
     Indication: DYSPEPSIA
     Route: 065
  20. FAMVIR [Concomitant]
     Route: 065
  21. PEPCID [Concomitant]
     Indication: DYSPEPSIA
     Route: 048
  22. DIFLUCAN [Concomitant]
     Route: 065
  23. CITRUCEL [Concomitant]
     Route: 065
  24. TIGAN [Concomitant]
     Route: 065
  25. IBUPROFEN [Concomitant]
     Indication: ARTHRALGIA
     Route: 065
     Dates: start: 20020101, end: 20050101
  26. TYLENOL (CAPLET) [Concomitant]
     Indication: ARTHRALGIA
     Route: 065
     Dates: start: 20000101
  27. SKELAXIN [Concomitant]
     Indication: ANALGESIC EFFECT
     Route: 065
     Dates: start: 20030101
  28. NAPROSYN [Concomitant]
     Route: 065
     Dates: start: 20030101
  29. ACETAMINOPHEN AND PROPOXYPHENE NAPSYLATE [Concomitant]
     Route: 065
     Dates: start: 20020101

REACTIONS (3)
  - BLOOD CHOLESTEROL INCREASED [None]
  - HYPERTENSION [None]
  - MYOCARDIAL INFARCTION [None]
